FAERS Safety Report 22039704 (Version 1)
Quarter: 2023Q1

REPORT INFORMATION
  Report Type: Spontaneous
  Country: US (occurrence: US)
  Receive Date: 20230227
  Receipt Date: 20230227
  Transmission Date: 20230417
  Serious: No
  Sender: FDA-Public Use
  Company Number: US-GSK-US2023AMR027327

PATIENT
  Sex: Female

DRUGS (1)
  1. BENLYSTA [Suspect]
     Active Substance: BELIMUMAB
     Indication: Systemic lupus erythematosus
     Dosage: 200 MG/ML, WE (PEN 4/PK)

REACTIONS (4)
  - Abdominal pain [Recovered/Resolved]
  - Coronavirus infection [Unknown]
  - Injection site pain [Unknown]
  - Wrong technique in device usage process [Unknown]
